FAERS Safety Report 16262803 (Version 1)
Quarter: 2019Q2

REPORT INFORMATION
  Report Type: Report from Study
  Country: JP (occurrence: JP)
  Receive Date: 20190502
  Receipt Date: 20190502
  Transmission Date: 20190711
  Serious: Yes (Hospitalization, Other)
  Sender: FDA-Public Use
  Company Number: JP-ALXN-A201906382AA

PATIENT

DRUGS (25)
  1. GRAN [Concomitant]
     Active Substance: FILGRASTIM
     Indication: PAROXYSMAL NOCTURNAL HAEMOGLOBINURIA
     Dosage: 600 ?G, AS APPROPRIATE
     Route: 065
     Dates: start: 20151014
  2. NOVAMIN                            /00013301/ [Concomitant]
     Active Substance: PROCHLORPERAZINE
     Indication: PRODUCT USED FOR UNKNOWN INDICATION
     Dosage: 5 MG, UNK
     Route: 065
     Dates: start: 20181202, end: 20181202
  3. SAWACILLIN [Concomitant]
     Active Substance: AMOXICILLIN
     Dosage: 750 MG, UNK
     Route: 065
     Dates: start: 20190325, end: 20190327
  4. SOLIRIS [Suspect]
     Active Substance: ECULIZUMAB
     Dosage: 900 MG, Q2W
     Route: 042
     Dates: start: 20180718
  5. CALONAL [Concomitant]
     Active Substance: ACETAMINOPHEN
     Indication: PRODUCT USED FOR UNKNOWN INDICATION
     Dosage: UNK MG, PRN
     Route: 065
     Dates: start: 20180805
  6. METOCLOPRAMIDE. [Concomitant]
     Active Substance: METOCLOPRAMIDE
     Dosage: 5 MG, PRN
     Dates: start: 20181202, end: 20181202
  7. LEVOFLOXACIN HEMIHYDRATE [Concomitant]
     Active Substance: LEVOFLOXACIN
     Indication: PRODUCT USED FOR UNKNOWN INDICATION
     Dosage: 500 MG, UNK
     Route: 065
     Dates: start: 20180810, end: 20180820
  8. LEVOFLOXACIN HEMIHYDRATE [Concomitant]
     Active Substance: LEVOFLOXACIN
     Dosage: 500 MG, UNK
     Route: 065
     Dates: start: 20190104, end: 20190108
  9. REVOLADE [Concomitant]
     Active Substance: ELTROMBOPAG
     Indication: PAROXYSMAL NOCTURNAL HAEMOGLOBINURIA
     Dosage: 100 MG, UNK
     Route: 065
     Dates: start: 20171023
  10. LEVOFLOXACIN HEMIHYDRATE [Concomitant]
     Active Substance: LEVOFLOXACIN
     Dosage: 500 MG, UNK
     Route: 065
     Dates: start: 20181220, end: 20181222
  11. CIPROFLOXACIN. [Concomitant]
     Active Substance: CIPROFLOXACIN
     Indication: PRODUCT USED FOR UNKNOWN INDICATION
     Dosage: 600 MG, UNK
     Route: 065
     Dates: start: 20181022, end: 20181031
  12. NEORAL [Concomitant]
     Active Substance: CYCLOSPORINE
     Dosage: 250 MG, UNK
     Route: 065
     Dates: start: 20180910
  13. GENTACIN [Concomitant]
     Active Substance: GENTAMICIN SULFATE
     Indication: PRODUCT USED FOR UNKNOWN INDICATION
     Dosage: UNK, PRN
     Route: 062
     Dates: start: 20180918, end: 20181106
  14. CIPROFLOXACIN. [Concomitant]
     Active Substance: CIPROFLOXACIN
     Dosage: 600 MG, UNK
     Route: 065
     Dates: start: 20181105, end: 20181111
  15. SOLIRIS [Suspect]
     Active Substance: ECULIZUMAB
     Indication: PAROXYSMAL NOCTURNAL HAEMOGLOBINURIA
     Dosage: 600 MG, QW
     Route: 042
     Dates: start: 20180620, end: 20180711
  16. NEORAL [Concomitant]
     Active Substance: CYCLOSPORINE
     Indication: PAROXYSMAL NOCTURNAL HAEMOGLOBINURIA
     Dosage: 350 MG, DAILY
     Route: 065
     Dates: start: 20171204, end: 20180717
  17. FOLIAMIN [Concomitant]
     Active Substance: FOLIC ACID
     Indication: PAROXYSMAL NOCTURNAL HAEMOGLOBINURIA
     Dosage: 5 MG, UNK
     Route: 065
     Dates: start: 20180807
  18. SAWACILLIN [Concomitant]
     Active Substance: AMOXICILLIN
     Indication: PRODUCT USED FOR UNKNOWN INDICATION
     Dosage: 750 MG, UNK
     Route: 065
     Dates: start: 20190128, end: 20190130
  19. SODIUM PICOSULFATE [Concomitant]
     Active Substance: SODIUM PICOSULFATE
     Indication: PRODUCT USED FOR UNKNOWN INDICATION
     Dosage: UNK
     Route: 065
     Dates: start: 20180207
  20. NEORAL [Concomitant]
     Active Substance: CYCLOSPORINE
     Dosage: 300 MG, DAILY
     Route: 065
     Dates: start: 20180718, end: 20180909
  21. CEFZON                             /01130201/ [Concomitant]
     Indication: PRODUCT USED FOR UNKNOWN INDICATION
     Dosage: 300 MG, UNK
     Route: 065
     Dates: start: 20180910, end: 20180924
  22. SAWACILLIN [Concomitant]
     Active Substance: AMOXICILLIN
     Dosage: 750 MG, UNK
     Route: 065
     Dates: start: 20190311, end: 20190313
  23. DRUG NOT ADMINISTERED [Concomitant]
     Active Substance: UNSPECIFIED INGREDIENT
     Indication: PRODUCT USED FOR UNKNOWN INDICATION
     Dosage: 20 MG, PRN
     Route: 065
     Dates: start: 20190213, end: 20190218
  24. ADONA                              /00056903/ [Concomitant]
     Active Substance: CARBAZOCHROME SODIUM SULFONATE
     Indication: PAROXYSMAL NOCTURNAL HAEMOGLOBINURIA
     Dosage: 90 MG, UNK
     Route: 065
     Dates: start: 20171120, end: 20180817
  25. METOCLOPRAMIDE. [Concomitant]
     Active Substance: METOCLOPRAMIDE
     Indication: PRODUCT USED FOR UNKNOWN INDICATION
     Dosage: 5 MG, UNK
     Route: 048
     Dates: start: 20180806, end: 20180810

REACTIONS (8)
  - Dermal cyst [Recovered/Resolved]
  - Pyrexia [Recovered/Resolved]
  - Dermal cyst [Recovering/Resolving]
  - Pyrexia [Recovered/Resolved]
  - Mass [Recovering/Resolving]
  - Conjunctivitis [Recovered/Resolved]
  - Upper respiratory tract inflammation [Recovered/Resolved]
  - Nasopharyngitis [Not Recovered/Not Resolved]

NARRATIVE: CASE EVENT DATE: 20180731
